FAERS Safety Report 4724778-2 (Version None)
Quarter: 2005Q3

REPORT INFORMATION
  Report Type: 
  Country: None (occurrence: None)
  Receive Date: 20050726
  Receipt Date: 20050719
  Transmission Date: 20060218
  Serious: Yes (Life-Threatening, Hospitalization)
  Sender: FDA-Public Use
  Company Number: L.23.002.2005

PATIENT
  Age: 19 Year
  Sex: Female

DRUGS (3)
  1. ALBENDAZOLE [Suspect]
     Route: 065
     Dates: start: 20050301
  2. IVERMECTIN [Suspect]
     Route: 065
     Dates: start: 20050301
  3. NO CONCURRENT MEDICATION [Concomitant]

REACTIONS (7)
  - CHEILITIS [None]
  - EYE PRURITUS [None]
  - GLOSSITIS [None]
  - HEADACHE [None]
  - PRURITUS [None]
  - VISION BLURRED [None]
  - VISUAL ACUITY REDUCED [None]
